FAERS Safety Report 7725482-9 (Version None)
Quarter: 2011Q3

REPORT INFORMATION
  Report Type: 
  Country: None (occurrence: None)
  Receive Date: 20110902
  Receipt Date: 20110802
  Transmission Date: 20111222
  Serious: No
  Sender: FDA-Public Use
  Company Number: US-BRISTOL-MYERS SQUIBB COMPANY-15908239

PATIENT
  Age: 54 Year
  Sex: Male
  Weight: 131 kg

DRUGS (6)
  1. KOMBIGLYZE XR [Suspect]
     Indication: TYPE 2 DIABETES MELLITUS
     Dosage: 1DF: 5/500MG.
     Dates: start: 20110501, end: 20110711
  2. VALTURNA [Concomitant]
     Dosage: 1DF: 150/160.
  3. LASIX [Concomitant]
  4. NEXIUM [Concomitant]
  5. KLOR-CON [Concomitant]
  6. NEURONTIN [Concomitant]

REACTIONS (1)
  - CHEST PAIN [None]
